FAERS Safety Report 17013290 (Version 2)
Quarter: 2020Q1

REPORT INFORMATION
  Report Type: Report from Study
  Country: BR (occurrence: BR)
  Receive Date: 20191110
  Receipt Date: 20200317
  Transmission Date: 20200409
  Serious: Yes (Hospitalization, Other)
  Sender: FDA-Public Use
  Company Number: PHHY2019BR102809

PATIENT
  Age: 60 Year
  Sex: Female

DRUGS (3)
  1. INTERFERON BETA-1B [Suspect]
     Active Substance: INTERFERON BETA-1B
     Indication: PRODUCT USED FOR UNKNOWN INDICATION
     Dosage: UNK
     Route: 065
  2. GILENYA [Suspect]
     Active Substance: FINGOLIMOD HYDROCHLORIDE
     Indication: MULTIPLE SCLEROSIS
     Dosage: UNK
     Route: 065
     Dates: start: 20190125
  3. GILENYA [Suspect]
     Active Substance: FINGOLIMOD HYDROCHLORIDE
     Dosage: UNK
     Route: 065
     Dates: start: 20190228

REACTIONS (18)
  - Malaise [Unknown]
  - Gastric ulcer [Unknown]
  - Hypophagia [Recovered/Resolved]
  - Seizure [Unknown]
  - Syncope [Unknown]
  - Blood potassium decreased [Unknown]
  - Vomiting [Recovered/Resolved]
  - Bacterial abdominal infection [Not Recovered/Not Resolved]
  - Dizziness [Unknown]
  - Abdominal discomfort [Recovered/Resolved]
  - Prescribed underdose [Unknown]
  - Multiple sclerosis relapse [Unknown]
  - Tremor [Unknown]
  - General physical health deterioration [Unknown]
  - Gait disturbance [Unknown]
  - Blood sodium decreased [Unknown]
  - Dehydration [Recovered/Resolved]
  - Asthenia [Recovered/Resolved]

NARRATIVE: CASE EVENT DATE: 201904
